FAERS Safety Report 11055211 (Version 1)
Quarter: 2015Q2

REPORT INFORMATION
  Report Type: Spontaneous
  Country: US (occurrence: US)
  Receive Date: 20150422
  Receipt Date: 20150422
  Transmission Date: 20150821
  Serious: No
  Sender: FDA-Public Use
  Company Number: US-SA-2015SA032417

PATIENT

DRUGS (2)
  1. ENOXAPARIN SODIUM - WINTHROP [Suspect]
     Active Substance: ENOXAPARIN SODIUM
     Dosage: SINCE DECEMBER.
     Route: 065
  2. NEULASTA [Concomitant]
     Active Substance: PEGFILGRASTIM

REACTIONS (6)
  - Injection site pain [Unknown]
  - Blood blister [Unknown]
  - Injection site bruising [Unknown]
  - Needle issue [Unknown]
  - Injection site vesicles [Unknown]
  - Injection site mass [Unknown]
